FAERS Safety Report 11851150 (Version 1)
Quarter: 2015Q4

REPORT INFORMATION
  Report Type: Spontaneous
  Country: US (occurrence: US)
  Receive Date: 20151218
  Receipt Date: 20151218
  Transmission Date: 20160305
  Serious: No
  Sender: FDA-Public Use
  Company Number: US-JNJFOC-20150516747

PATIENT
  Age: 57 Year
  Sex: Female
  Weight: 53.52 kg

DRUGS (7)
  1. KRILL OIL [Concomitant]
     Active Substance: DIETARY SUPPLEMENT
     Indication: ARTHROPATHY
     Dosage: 1 GEL PER DAY FOR 4 MONTHS
     Route: 065
  2. SOY ISOFLAVONES [Concomitant]
     Active Substance: SOY ISOFLAVONES
     Indication: CARDIAC DISORDER
     Dosage: 1 GEL PER DAY
     Route: 065
  3. WOMENS ROGAINE UNSCENTED [Suspect]
     Active Substance: MINOXIDIL
     Indication: ALOPECIA
     Dosage: 1/2 CAP
     Route: 061
  4. SOY ISOFLAVONES [Concomitant]
     Active Substance: SOY ISOFLAVONES
     Indication: BONE DISORDER
     Dosage: 1 GEL PER DAY
     Route: 065
  5. WOMENS ROGAINE UNSCENTED [Suspect]
     Active Substance: MINOXIDIL
     Route: 061
  6. VITAMIN A [Concomitant]
     Active Substance: VITAMIN A
     Indication: HAIR GROWTH ABNORMAL
     Dosage: 5000 UNITS FO 2 MONTHS
     Route: 065
  7. SOY ISOFLAVONES [Concomitant]
     Active Substance: SOY ISOFLAVONES
     Indication: HOT FLUSH
     Dosage: 1 GEL PER DAY
     Route: 065

REACTIONS (1)
  - Alopecia [Recovering/Resolving]
